FAERS Safety Report 9767483 (Version 2)
Quarter: 2013Q4

REPORT INFORMATION
  Report Type: Spontaneous
  Country: US (occurrence: US)
  Receive Date: 20131217
  Receipt Date: 20131217
  Transmission Date: 20140711
  Serious: Yes (Hospitalization, Disabling)
  Sender: FDA-Public Use
  Company Number: US-ASTRAZENECA-2013SE38641

PATIENT
  Age: 46 Year
  Sex: Male
  Weight: 117.9 kg

DRUGS (20)
  1. NEXIUM [Suspect]
     Indication: GASTROOESOPHAGEAL REFLUX DISEASE
     Route: 048
     Dates: start: 2004
  2. NEXIUM [Suspect]
     Indication: GASTROOESOPHAGEAL REFLUX DISEASE
     Route: 048
     Dates: start: 20130924
  3. PRILOSEC [Suspect]
     Indication: GASTROOESOPHAGEAL REFLUX DISEASE
     Route: 048
  4. ALKA SELTZER [Concomitant]
  5. MILK OF MAGNESIA [Concomitant]
  6. PEPTO BISMOL [Concomitant]
  7. ROLAIDS [Concomitant]
  8. MYLANTA [Concomitant]
     Indication: GASTROOESOPHAGEAL REFLUX DISEASE
     Dosage: AS NEEDED
  9. NORVASC [Concomitant]
     Indication: HYPERTENSION
  10. PLAVIX [Concomitant]
     Indication: ARTERIAL DISORDER
  11. FLOVENT [Concomitant]
     Indication: LUNG DISORDER
  12. OXYCODONE [Concomitant]
     Indication: PAIN
  13. BENZONATATE [Concomitant]
     Route: 048
  14. INSPRA [Concomitant]
  15. APRESOLINE [Concomitant]
  16. ACCUPRIL [Concomitant]
  17. FLOMAX [Concomitant]
  18. ZOLPIDEM [Concomitant]
  19. TORSEMIDE [Concomitant]
  20. PROMETHAZINE/PHENERGAN [Concomitant]
     Indication: NAUSEA

REACTIONS (9)
  - Spinal cord injury [Unknown]
  - Diabetes mellitus [Unknown]
  - Cardiac disorder [Unknown]
  - Osteoporosis [Unknown]
  - Bone disorder [Unknown]
  - Hand fracture [Unknown]
  - Arthritis [Unknown]
  - Chronic obstructive pulmonary disease [Unknown]
  - Aortic disorder [Unknown]
